FAERS Safety Report 10829398 (Version 1)
Quarter: 2015Q1

REPORT INFORMATION
  Report Type: Report from Study
  Country: US (occurrence: US)
  Receive Date: 20150219
  Receipt Date: 20150219
  Transmission Date: 20150721
  Serious: No
  Sender: FDA-Public Use
  Company Number: US-ABBVIE-14P-163-1187631-00

PATIENT
  Age: 44 Year
  Sex: Female
  Weight: 46.31 kg

DRUGS (5)
  1. HUMIRA [Suspect]
     Active Substance: ADALIMUMAB
     Indication: CROHN^S DISEASE
     Dosage: ONE DOSE
     Dates: start: 2011, end: 2011
  2. HUMIRA [Suspect]
     Active Substance: ADALIMUMAB
     Dosage: TWO WEEKS AFTER 160MG DOSE
     Dates: start: 2011, end: 2011
  3. UNNAMED PAIN MEDICATION [Suspect]
     Active Substance: UNSPECIFIED INGREDIENT
     Indication: PAIN
     Dosage: TWO DOSES
     Dates: start: 201311, end: 201311
  4. TYLENOL [Concomitant]
     Active Substance: ACETAMINOPHEN
     Indication: HEADACHE
  5. HUMIRA [Suspect]
     Active Substance: ADALIMUMAB
     Dosage: FOUR WEEKS AFTER 160 MG DOSE
     Dates: start: 2011, end: 20131108

REACTIONS (11)
  - Defaecation urgency [Not Recovered/Not Resolved]
  - Asthenia [Not Recovered/Not Resolved]
  - Ingrown hair [Recovered/Resolved]
  - Vomiting [Not Recovered/Not Resolved]
  - Psoriasis [Not Recovered/Not Resolved]
  - Fatigue [Not Recovered/Not Resolved]
  - Infection [Recovered/Resolved]
  - Sedation [Recovered/Resolved]
  - Memory impairment [Recovering/Resolving]
  - Abdominal pain [Not Recovered/Not Resolved]
  - Pain [Not Recovered/Not Resolved]

NARRATIVE: CASE EVENT DATE: 201311
